FAERS Safety Report 7124872-5 (Version None)
Quarter: 2010Q4

REPORT INFORMATION
  Report Type: 
  Country: None (occurrence: None)
  Receive Date: 20101129
  Receipt Date: 20101116
  Transmission Date: 20110411
  Serious: Yes (Death)
  Sender: FDA-Public Use
  Company Number: JP-GENZYME-THYM-1002010

PATIENT
  Age: 55 Year
  Sex: Male
  Weight: 75 kg

DRUGS (35)
  1. THYMOGLOBULIN [Suspect]
     Indication: APLASTIC ANAEMIA
     Dosage: 175 MG, QD
     Route: 042
     Dates: start: 20090401, end: 20090405
  2. METHYLPREDNISOLONE SODIUM SUCCINATE [Concomitant]
     Indication: PREMEDICATION
     Dosage: UNK
     Route: 065
     Dates: start: 20090401, end: 20090405
  3. ENTECAVIR [Concomitant]
     Indication: ANTIVIRAL PROPHYLAXIS
     Dosage: UNK
     Route: 065
     Dates: start: 20090331, end: 20090402
  4. ENTECAVIR [Concomitant]
     Indication: APLASTIC ANAEMIA
     Dosage: UNK
     Route: 065
     Dates: start: 20090101, end: 20090901
  5. DEXCHLORPHENIRAMINE MALEATE [Concomitant]
     Indication: PREMEDICATION
     Dosage: UNK
     Route: 065
     Dates: start: 20090401, end: 20090401
  6. TEPRENONE [Concomitant]
     Indication: APLASTIC ANAEMIA
     Dosage: UNK
     Route: 065
     Dates: start: 20090405, end: 20090918
  7. DEFERASIROX [Concomitant]
     Indication: APLASTIC ANAEMIA
     Dosage: UNK
     Route: 065
     Dates: start: 20090325, end: 20090918
  8. FILGRASTIM [Concomitant]
     Indication: APLASTIC ANAEMIA
     Dosage: UNK
     Route: 065
     Dates: start: 20090406, end: 20090408
  9. FILGRASTIM [Concomitant]
     Dosage: UNK
     Route: 065
     Dates: start: 20090526, end: 20090616
  10. FILGRASTIM [Concomitant]
     Dosage: UNK
     Route: 065
     Dates: start: 20090721, end: 20090805
  11. FILGRASTIM [Concomitant]
     Dosage: UNK
     Dates: start: 20090825, end: 20090922
  12. CEFEPIME HYDROCHLORIDE [Concomitant]
     Indication: PROPHYLAXIS
     Dosage: UNK
     Route: 065
     Dates: start: 20090430, end: 20090502
  13. MEROPENEM TRIHYDRATE [Concomitant]
     Indication: PROPHYLAXIS
     Dosage: UNK
     Route: 065
     Dates: start: 20090502, end: 20090511
  14. MEROPENEM TRIHYDRATE [Concomitant]
     Dosage: UNK
     Route: 065
     Dates: start: 20090710, end: 20090723
  15. MICAFUNGIN SODIUM [Concomitant]
     Indication: PROPHYLAXIS
     Dosage: UNK
     Route: 065
     Dates: start: 20090512, end: 20090522
  16. PIPERACILLIN W [Concomitant]
     Indication: PROPHYLAXIS
     Dosage: UNK
     Route: 065
     Dates: start: 20090513, end: 20090526
  17. GANCICLOVIR [Concomitant]
     Indication: PROPHYLAXIS
     Dosage: UNK
     Route: 065
     Dates: start: 20090515, end: 20090526
  18. GANCICLOVIR [Concomitant]
     Dosage: UNK
     Dates: start: 20090811, end: 20090901
  19. FOSCARNET SODIUM [Concomitant]
     Indication: PROPHYLAXIS
     Dosage: UNK
     Route: 065
     Dates: start: 20090527, end: 20090610
  20. FOSCARNET SODIUM [Concomitant]
     Dosage: UNK
     Route: 065
     Dates: start: 20090706, end: 20090714
  21. FOSCARNET SODIUM [Concomitant]
     Dosage: UNK
     Route: 065
     Dates: start: 20090715, end: 20090729
  22. BIAPENEM [Concomitant]
     Indication: PROPHYLAXIS
     Dosage: UNK
     Route: 065
     Dates: start: 20090610, end: 20090623
  23. BIAPENEM [Concomitant]
     Dosage: UNK
     Route: 065
     Dates: start: 20090724, end: 20090806
  24. BIAPENEM [Concomitant]
     Dosage: UNK
     Route: 065
     Dates: start: 20090911, end: 20090921
  25. CEFOZOPRAN HYDROCHLORIDE [Concomitant]
     Indication: PROPHYLAXIS
     Dosage: UNK
     Route: 065
     Dates: start: 20090626, end: 20090709
  26. CEFOZOPRAN HYDROCHLORIDE [Concomitant]
     Dosage: UNK
     Route: 065
     Dates: start: 20090807, end: 20090820
  27. MIXED AMINO ACID CARBOHYDRATE ELECTROLYTE COMBINED DRUG [Concomitant]
     Indication: APLASTIC ANAEMIA
     Dosage: UNK
     Route: 065
     Dates: start: 20090731, end: 20090804
  28. PEPSIN TREATED HUMAN IMMUNOGLOBULIN [Concomitant]
     Indication: APLASTIC ANAEMIA
     Dosage: UNK
     Route: 065
     Dates: start: 20090704, end: 20090706
  29. SULBACTAM SODIUM CEFOPERAZONE SODIUM [Concomitant]
     Indication: PROPHYLAXIS
     Dosage: UNK
     Route: 065
     Dates: start: 20090826, end: 20090908
  30. ARBEKACIN SULFATE [Concomitant]
     Indication: PROPHYLAXIS
     Dosage: UNK
     Route: 065
     Dates: start: 20090912, end: 20090922
  31. FLUCONAZOLE [Concomitant]
     Indication: PROPHYLAXIS
     Dosage: UNK
     Route: 065
     Dates: start: 20090408, end: 20090921
  32. RABEPRAZOLE SODIUM [Concomitant]
     Indication: PROPHYLAXIS
     Dosage: UNK
     Route: 065
     Dates: start: 20090410, end: 20090921
  33. PREDNISOLONE [Concomitant]
     Indication: APLASTIC ANAEMIA
     Dosage: UNK
     Route: 065
     Dates: start: 20090408, end: 20090421
  34. SULFAMETHOPRIM [Concomitant]
     Indication: PROPHYLAXIS
     Dosage: UNK
     Route: 065
     Dates: start: 20090408, end: 20090921
  35. ITRACONAZOLE [Concomitant]
     Indication: PROPHYLAXIS
     Dosage: UNK
     Route: 065
     Dates: start: 20090101, end: 20090715

REACTIONS (6)
  - ABDOMINAL PAIN UPPER [None]
  - APLASTIC ANAEMIA [None]
  - ARRHYTHMIA [None]
  - CYTOMEGALOVIRUS INFECTION [None]
  - RENAL IMPAIRMENT [None]
  - THERAPEUTIC RESPONSE DECREASED [None]
